FAERS Safety Report 6334695-2 (Version None)
Quarter: 2009Q3

REPORT INFORMATION
  Report Type: 
  Country: None (occurrence: None)
  Receive Date: 20090831
  Receipt Date: 20070905
  Transmission Date: 20100115
  Serious: Yes (Hospitalization, Other)
  Sender: FDA-Public Use
  Company Number: US-ASTRAZENECA-2008UW01496

PATIENT
  Age: 36 Year
  Sex: Male
  Weight: 110.7 kg

DRUGS (10)
  1. SEROQUEL [Suspect]
     Indication: SLEEP DISORDER
     Route: 048
     Dates: start: 20020901, end: 20051201
  2. SEROQUEL [Suspect]
     Route: 048
     Dates: start: 20050901
  3. PERCOCET [Concomitant]
     Indication: PAIN
     Dosage: STRENGTH: 5 MG/325 MG. DOSE: ONE-TWO TABLET Q 4H TO 6H
     Route: 048
     Dates: start: 20050905
  4. COUMADIN [Concomitant]
     Dosage: STRENGTH: 7.5 MG, 10 MG. DOSE: 7.5 MG TO 10 MG DAILY
     Route: 048
     Dates: start: 20050905
  5. GLUCOPHAGE [Concomitant]
     Route: 048
     Dates: start: 20050905
  6. ACTOS [Concomitant]
     Route: 048
     Dates: start: 20050905
  7. ALTACE [Concomitant]
     Dosage: STRENGTH: 1.25 MG, 5 MG. DOSE: 5 MG DAILY
     Route: 048
     Dates: start: 20050905
  8. LOVENOX [Concomitant]
     Dosage: STRENGTH: 60 MG. DOSE: 1 MG/KG TWO TIMES A DAY
     Dates: start: 20050905
  9. ALPRAZOLAM [Concomitant]
     Dates: start: 20050911
  10. TORADOL [Concomitant]
     Dates: start: 20051026

REACTIONS (7)
  - DIABETES MELLITUS [None]
  - DIABETES MELLITUS INADEQUATE CONTROL [None]
  - DIABETIC COMPLICATION [None]
  - DIABETIC KETOACIDOSIS [None]
  - KETOACIDOSIS [None]
  - PANCREATITIS [None]
  - TYPE 1 DIABETES MELLITUS [None]
